FAERS Safety Report 5339350-3 (Version None)
Quarter: 2007Q2

REPORT INFORMATION
  Report Type: 
  Country: None (occurrence: None)
  Receive Date: 20070322
  Receipt Date: 20070103
  Transmission Date: 20071010
  Serious: Yes (Other)
  Sender: FDA-Public Use
  Company Number: 200615048BCC

PATIENT
  Age: 19 Year
  Sex: Male
  Weight: 70.3075 kg

DRUGS (1)
  1. ALEVE [Suspect]
     Indication: DRUG USE FOR UNKNOWN INDICATION
     Dosage: 440 MG, ONCE, ORAL
     Route: 048
     Dates: start: 20061219

REACTIONS (4)
  - DIZZINESS [None]
  - HALLUCINATION [None]
  - SKIN DISCOLOURATION [None]
  - VISUAL DISTURBANCE [None]
